FAERS Safety Report 11110251 (Version 1)
Quarter: 2015Q2

REPORT INFORMATION
  Report Type: Spontaneous
  Country: US (occurrence: None)
  Receive Date: 20150512
  Receipt Date: 20150512
  Transmission Date: 20150821
  Serious: Yes (Disabling)
  Sender: FDA-Public Use
  Company Number: None

PATIENT
  Age: 22 Year
  Sex: Female
  Weight: 62.6 kg

DRUGS (2)
  1. MIRENA [Suspect]
     Active Substance: LEVONORGESTREL
  2. LORATADINE. [Concomitant]
     Active Substance: LORATADINE

REACTIONS (6)
  - Peripheral swelling [None]
  - Alopecia [None]
  - Headache [None]
  - Joint swelling [None]
  - Condition aggravated [None]
  - Urticaria [None]

NARRATIVE: CASE EVENT DATE: 20140707
